FAERS Safety Report 6516667-8 (Version None)
Quarter: 2009Q4

REPORT INFORMATION
  Report Type: 
  Country: None (occurrence: None)
  Receive Date: 20091223
  Receipt Date: 20091216
  Transmission Date: 20100525
  Serious: Yes (Other)
  Sender: FDA-Public Use
  Company Number: JP-MERCK-0912USA02958

PATIENT
  Age: 20 Year
  Sex: Male

DRUGS (5)
  1. PEPCID [Suspect]
     Route: 048
  2. PHENOBARBITAL TAB [Concomitant]
     Route: 048
  3. CERCINE [Concomitant]
     Route: 048
  4. MUCODYNE [Concomitant]
     Route: 048
  5. LAXOBERON [Concomitant]
     Route: 048

REACTIONS (1)
  - BLOOD CREATINE PHOSPHOKINASE INCREASED [None]
